FAERS Safety Report 6889735-9 (Version None)
Quarter: 2010Q3

REPORT INFORMATION
  Report Type: 
  Country: None (occurrence: None)
  Receive Date: 20100730
  Receipt Date: 20080417
  Transmission Date: 20110219
  Serious: No
  Sender: FDA-Public Use
  Company Number: US-PFIZER INC-2008034210

PATIENT
  Sex: Female
  Weight: 31.818 kg

DRUGS (4)
  1. LIPITOR [Suspect]
     Indication: BLOOD CHOLESTEROL INCREASED
     Route: 048
     Dates: start: 20010101
  2. ANTIHYPERTENSIVES [Concomitant]
     Route: 048
  3. ZYRTEC [Concomitant]
     Route: 048
  4. PREVACID [Concomitant]
     Route: 048

REACTIONS (3)
  - MUSCLE DISORDER [None]
  - MYALGIA [None]
  - WRONG TECHNIQUE IN DRUG USAGE PROCESS [None]
